FAERS Safety Report 8981892 (Version 1)
Quarter: 2012Q4

REPORT INFORMATION
  Report Type: 
  Country: US (occurrence: US)
  Receive Date: 20121212
  Receipt Date: 20121212
  Transmission Date: 20130627
  Serious: Yes (Hospitalization)
  Sender: FDA-Public Use
  Company Number: US-ASTELLAS-1113978

PATIENT
  Sex: Female

DRUGS (12)
  1. TARCEVA [Suspect]
     Indication: MALIGNANT RESPIRATORY TRACT NEOPLASM
     Route: 065
  2. SPIRIVA [Concomitant]
  3. PULMICORT [Concomitant]
  4. FORADIL [Concomitant]
  5. XOPENEX [Concomitant]
  6. VERAPAMIL [Concomitant]
  7. K-LOR [Concomitant]
  8. HYDROCHLOROTHIAZIDE [Concomitant]
  9. LIPITOR [Concomitant]
  10. XANAX [Concomitant]
  11. ASPIRIN [Concomitant]
  12. MAG OXIDE [Concomitant]

REACTIONS (1)
  - Disease progression [Unknown]
